FAERS Safety Report 8904309 (Version 1)
Quarter: 2012Q4

REPORT INFORMATION
  Report Type: 
  Country: DE (occurrence: DE)
  Receive Date: 20121112
  Receipt Date: 20121112
  Transmission Date: 20130627
  Serious: Yes (Other)
  Sender: FDA-Public Use
  Company Number: DE-GLAXOSMITHKLINE-B0843265A

PATIENT
  Sex: Female

DRUGS (9)
  1. FORMOTEROL [Suspect]
     Indication: ASTHMA
     Route: 065
  2. BECLOMETASONE DIPROPIONATE [Suspect]
     Indication: ASTHMA
     Route: 065
  3. QUETIAPINE [Suspect]
     Indication: PSYCHOTIC DISORDER
     Route: 065
  4. CITALOPRAM [Suspect]
     Indication: PSYCHOTIC DISORDER
     Route: 065
  5. RESTEX [Suspect]
     Indication: RESTLESS LEGS SYNDROME
  6. MADOPAR [Suspect]
     Indication: RESTLESS LEGS SYNDROME
     Route: 065
  7. DOXEPIN [Suspect]
     Indication: PSYCHOTIC DISORDER
     Route: 065
  8. ETHINYL ESTRADIOL [Suspect]
     Indication: CONTRACEPTION
     Route: 065
  9. LEVONORGESTREL [Suspect]
     Indication: CONTRACEPTION
     Route: 065

REACTIONS (4)
  - Premature labour [Unknown]
  - Live birth [Unknown]
  - Exposure during pregnancy [Unknown]
  - Twin pregnancy [Unknown]
